FAERS Safety Report 15697440 (Version 1)
Quarter: 2018Q4

REPORT INFORMATION
  Report Type: Spontaneous
  Country: CZ (occurrence: CZ)
  Receive Date: 20181207
  Receipt Date: 20181207
  Transmission Date: 20190205
  Serious: Yes (Other)
  Sender: FDA-Public Use
  Company Number: CZ-ROCHE-2222899

PATIENT
  Sex: Female

DRUGS (1)
  1. CLONAZEPAM. [Suspect]
     Active Substance: CLONAZEPAM
     Indication: SCHIZOPHRENIA
     Route: 065

REACTIONS (6)
  - Depressive symptom [Unknown]
  - Obsessive-compulsive disorder [Unknown]
  - Schizophrenia [Unknown]
  - Apathy [Unknown]
  - Abulia [Unknown]
  - Anxiety [Unknown]
